FAERS Safety Report 19269891 (Version 1)
Quarter: 2021Q2

REPORT INFORMATION
  Report Type: Spontaneous
  Country: DE (occurrence: DE)
  Receive Date: 20210518
  Receipt Date: 20210518
  Transmission Date: 20210717
  Serious: Yes (Death, Hospitalization)
  Sender: FDA-Public Use
  Company Number: DE-MYLANLABS-2021M1028896

PATIENT
  Age: 71 Year
  Sex: Male

DRUGS (3)
  1. RITUXIMAB. [Suspect]
     Active Substance: RITUXIMAB
     Indication: RHEUMATOID ARTHRITIS
     Dosage: 2X1000MG INFUSION WITHIN 14 DAYS EVERY 6MONTHS
     Route: 065
     Dates: start: 2015
  2. METHOTREXATE. [Suspect]
     Active Substance: METHOTREXATE
     Indication: RHEUMATOID ARTHRITIS
     Dosage: 15 MILLIGRAM, QW
     Route: 058
  3. PREDNISOLONE. [Suspect]
     Active Substance: PREDNISOLONE
     Indication: PREMEDICATION
     Dosage: 50 MILLIGRAM
     Route: 065

REACTIONS (2)
  - COVID-19 pneumonia [Fatal]
  - Multiple organ dysfunction syndrome [Fatal]

NARRATIVE: CASE EVENT DATE: 202003
